FAERS Safety Report 15608021 (Version 1)
Quarter: 2018Q4

REPORT INFORMATION
  Report Type: Spontaneous
  Country: ES (occurrence: ES)
  Receive Date: 20181112
  Receipt Date: 20181112
  Transmission Date: 20190205
  Serious: Yes (Other)
  Sender: FDA-Public Use
  Company Number: ES-TEVA-2018-ES-973898

PATIENT
  Sex: Male

DRUGS (1)
  1. TENOFOVIRDISOPROXILOTEVA [Suspect]
     Active Substance: TENOFOVIR
     Route: 048
     Dates: start: 2018

REACTIONS (4)
  - Product quality issue [Unknown]
  - Medication error [Unknown]
  - Drug ineffective [Unknown]
  - Viral load increased [Unknown]

NARRATIVE: CASE EVENT DATE: 20181004
